FAERS Safety Report 9315056 (Version 2)
Quarter: 2013Q3

REPORT INFORMATION
  Report Type: Spontaneous
  Country: US (occurrence: US)
  Receive Date: 20130529
  Receipt Date: 20130711
  Transmission Date: 20140515
  Serious: Yes (Hospitalization)
  Sender: FDA-Public Use
  Company Number: US-B.I. PHARMACEUTICALS,INC./RIDGEFIELD-2013-BI-14621BP

PATIENT
  Age: 71 Year
  Sex: Male
  Weight: 127 kg

DRUGS (4)
  1. MICARDIS HCT TABLETS [Suspect]
     Indication: HYPERTENSION
     Dosage: STRENGTH: 80 MG / 12.5 MG; DAILY DOSE: 80 MG / 12.5 MG
     Route: 048
     Dates: start: 2008, end: 201302
  2. SPIRIVA [Suspect]
     Indication: CHRONIC OBSTRUCTIVE PULMONARY DISEASE
     Dosage: 18 MCG
     Route: 055
     Dates: start: 2012
  3. PROVENTIL [Concomitant]
     Indication: CHRONIC OBSTRUCTIVE PULMONARY DISEASE
     Route: 055
  4. ADVAIR [Concomitant]
     Indication: CHRONIC OBSTRUCTIVE PULMONARY DISEASE
     Dosage: STRENGTH: 250 / 50; DAILY DOSE: 500 / 100
     Route: 055

REACTIONS (5)
  - Dysuria [Not Recovered/Not Resolved]
  - Urinary retention [Not Recovered/Not Resolved]
  - Haematuria [Recovered/Resolved]
  - Atrial fibrillation [Not Recovered/Not Resolved]
  - Haematuria [Not Recovered/Not Resolved]
